FAERS Safety Report 11648994 (Version 1)
Quarter: 2015Q4

REPORT INFORMATION
  Report Type: Spontaneous
  Country: GR (occurrence: GR)
  Receive Date: 20151021
  Receipt Date: 20151021
  Transmission Date: 20160304
  Serious: Yes (Other)
  Sender: FDA-Public Use
  Company Number: GR-BAXTER-2015BAX056590

PATIENT
  Age: 60 Year
  Sex: Female

DRUGS (12)
  1. CARBOPLATIN. [Suspect]
     Active Substance: CARBOPLATIN
     Indication: BREAST CANCER
     Route: 065
  2. FEMARA [Suspect]
     Active Substance: LETROZOLE
     Indication: BREAST CANCER
     Route: 065
  3. TAXOL [Suspect]
     Active Substance: PACLITAXEL
     Indication: BREAST CANCER
     Route: 065
  4. AFINITOR [Suspect]
     Active Substance: EVEROLIMUS
     Indication: BREAST CANCER
     Route: 065
  5. ADRIAMYCIN [Suspect]
     Active Substance: DOXORUBICIN HYDROCHLORIDE
     Indication: BREAST CANCER
     Route: 065
  6. AVASTIN [Suspect]
     Active Substance: BEVACIZUMAB
     Indication: BREAST CANCER
     Route: 065
  7. PACLITAXEL. [Suspect]
     Active Substance: PACLITAXEL
     Indication: BREAST CANCER
     Route: 065
  8. AROMASIN [Suspect]
     Active Substance: EXEMESTANE
     Indication: BREAST CANCER
     Route: 065
  9. FLUOROURACIL 5 FU [Suspect]
     Active Substance: FLUOROURACIL
     Indication: BREAST CANCER
     Route: 065
  10. ENDOXAN 1000 MG - POWDER FOR SOLUTION FOR INJECTION [Suspect]
     Active Substance: CYCLOPHOSPHAMIDE
     Indication: BREAST CANCER
     Route: 065
  11. ZOMETA [Suspect]
     Active Substance: ZOLEDRONIC ACID
     Indication: BREAST CANCER
     Route: 065
  12. TAMOXIFEN CITRATE. [Suspect]
     Active Substance: TAMOXIFEN CITRATE
     Indication: BREAST CANCER
     Route: 065

REACTIONS (3)
  - No therapeutic response [Unknown]
  - Breast cancer metastatic [Unknown]
  - Malignant neoplasm progression [Unknown]
